FAERS Safety Report 17961765 (Version 1)
Quarter: 2020Q2

REPORT INFORMATION
  Report Type: Spontaneous
  Country: US (occurrence: US)
  Receive Date: 20200629
  Receipt Date: 20200629
  Transmission Date: 20200714
  Serious: No
  Sender: FDA-Public Use
  Company Number: US-ROCHE-2567301

PATIENT
  Age: 83 Year
  Sex: Male

DRUGS (1)
  1. XELODA [Suspect]
     Active Substance: CAPECITABINE
     Indication: COLON CANCER
     Dosage: ONGOING:YES
     Route: 048
     Dates: start: 20200201

REACTIONS (1)
  - Skin irritation [Unknown]

NARRATIVE: CASE EVENT DATE: 20200311
